FAERS Safety Report 6928271-8 (Version None)
Quarter: 2010Q3

REPORT INFORMATION
  Report Type: 
  Country: None (occurrence: None)
  Receive Date: 20100817
  Receipt Date: 20100806
  Transmission Date: 20110219
  Serious: Yes (Death)
  Sender: FDA-Public Use
  Company Number: DE-ROCHE-720142

PATIENT

DRUGS (2)
  1. CAPECITABINE [Suspect]
     Dosage: LAST DOSE OF PROTOCOL TREATMENT: 24 JAN 2008
     Route: 065
     Dates: start: 20070330, end: 20080219
  2. VINORELBIN [Suspect]
     Route: 065
     Dates: start: 20080219

REACTIONS (1)
  - DEATH [None]
